FAERS Safety Report 8398609-6 (Version None)
Quarter: 2012Q1

REPORT INFORMATION
  Report Type: 
  Country: None (occurrence: None)
  Receive Date: 20120323
  Receipt Date: 20111205
  Transmission Date: 20120608
  Serious: Yes (Other)
  Sender: FDA-Public Use
  Company Number: 163-21880-11120927

PATIENT
  Age: 82 Year
  Sex: Male
  Weight: 83.9154 kg

DRUGS (2)
  1. REVLIMID [Suspect]
     Indication: MULTIPLE MYELOMA
     Dosage: 10 MG, QD X 21 DAYS, PO, 10 MG, QD X 21 DAYS, PO
     Route: 048
     Dates: start: 20080219, end: 20101025
  2. REVLIMID [Suspect]
     Indication: MULTIPLE MYELOMA
     Dosage: 10 MG, QD X 21 DAYS, PO, 10 MG, QD X 21 DAYS, PO
     Route: 048
     Dates: start: 20111204

REACTIONS (3)
  - LOSS OF CONSCIOUSNESS [None]
  - BLOOD POTASSIUM INCREASED [None]
  - JOINT DISLOCATION [None]
